FAERS Safety Report 23393501 (Version 3)
Quarter: 2024Q4

REPORT INFORMATION
  Report Type: Spontaneous
  Country: US (occurrence: US)
  Receive Date: 20240111
  Receipt Date: 20241231
  Transmission Date: 20250115
  Serious: Yes (Other)
  Sender: PFIZER
  Company Number: US-PFIZER INC-PV202400004057

PATIENT
  Age: 69 Year
  Sex: Female
  Weight: 67.574 kg

DRUGS (16)
  1. XELJANZ XR [Suspect]
     Active Substance: TOFACITINIB CITRATE
     Dosage: 11MG X1DAILY. AM
  2. CEPHALEXIN [Concomitant]
     Active Substance: CEPHALEXIN
     Dosage: 500MG X 2DAILY AM,PM
  3. HYDROXYCHLOROQUINE [Concomitant]
     Active Substance: HYDROXYCHLOROQUINE
     Dosage: 200MG X 2DAILY AM,PM
  4. TIZANIDINE [Concomitant]
     Active Substance: TIZANIDINE
     Dosage: 4MG X 3DAIIY AM,M,PM
  5. GABAPENTIN [Concomitant]
     Active Substance: GABAPENTIN
     Dosage: 800MG X 3DAILY AM,M,PM
  6. PRAMIPEXOLE [Concomitant]
     Active Substance: PRAMIPEXOLE\PRAMIPEXOLE DIHYDROCHLORIDE
     Dosage: .5MG X 1DAILY PM
  7. PRAVASTATIN [Concomitant]
     Active Substance: PRAVASTATIN
     Dosage: 20MG X 1DAILY PM
  8. DULOXETINE [Concomitant]
     Active Substance: DULOXETINE
     Dosage: 60MG X 1DAILY PM
  9. PANTOPRAZOLE [Concomitant]
     Active Substance: PANTOPRAZOLE
     Dosage: 40MG X 1DAILY PM
  10. OXYCODONE [Concomitant]
     Active Substance: OXYCODONE
     Dosage: 10MG X 3DAILY AM,M,PM
  11. XTAMPZA ER [Concomitant]
     Active Substance: OXYCODONE
     Dosage: 36MG X2DAIIY. AM,PM
  12. LEVOTHYROXINE [Concomitant]
     Active Substance: LEVOTHYROXINE
     Dosage: 25MCG X1DAILY. AM
  13. PROBIOTICS NOS [Concomitant]
     Active Substance: PROBIOTICS NOS
     Dosage: 2 DIFFERENT ONES X2 DAILY
  14. B 12 [Concomitant]
     Dosage: X1 DAILY
  15. CALCIUM\CHOLECALCIFEROL [Concomitant]
     Active Substance: CALCIUM\CHOLECALCIFEROL
     Dosage: X1 DAILY
  16. FISH OIL [Concomitant]
     Active Substance: FISH OIL
     Dosage: 1200MG X1 DAILY

REACTIONS (4)
  - Eyelid ptosis [Recovered/Resolved]
  - Hip arthroplasty [Unknown]
  - Memory impairment [Not Recovered/Not Resolved]
  - Ehlers-Danlos syndrome [Unknown]

NARRATIVE: CASE EVENT DATE: 20231219
